FAERS Safety Report 5317111-9 (Version None)
Quarter: 2007Q2

REPORT INFORMATION
  Report Type: 
  Country: None (occurrence: None)
  Receive Date: 20070504
  Receipt Date: 20070424
  Transmission Date: 20071010
  Serious: Yes (Life-Threatening)
  Sender: FDA-Public Use
  Company Number: JP-ROCHE-484984

PATIENT
  Age: 46 Year
  Sex: Male
  Weight: 49 kg

DRUGS (14)
  1. ROCALTROL [Suspect]
     Indication: HYPOCALCAEMIA
     Dosage: DRUG NAME: ROCALTROL INJECTION
     Route: 042
     Dates: start: 20070210, end: 20070222
  2. CALCICOL [Concomitant]
     Dosage: ROUTE: INTRAVENOUS (NOT OTHERWISE SPECIFIED).
     Route: 042
     Dates: start: 20060923
  3. FESIN [Concomitant]
     Dosage: ROUTE: INTRAVENOUS (NOT OTHERWISE SPECIFIED).
     Route: 042
     Dates: start: 20060923
  4. ASCORBIC ACID [Concomitant]
     Dosage: ROUTE: INTRAVENOUS (NOT OTHERWISE SPECIFIED). DRUG NAME REPORTED AS VITACIMIN
     Route: 042
     Dates: start: 20060923
  5. CALTAN [Concomitant]
     Route: 048
  6. MUCOSTA [Concomitant]
     Route: 048
  7. MYSLEE [Concomitant]
     Route: 048
  8. ALFAROL [Concomitant]
     Route: 048
  9. ROCALTROL [Concomitant]
     Route: 048
  10. TAKEPRON [Concomitant]
     Route: 048
  11. FLUTIDE DISKUS [Concomitant]
     Dosage: ROUTE: RESPIRATORY (INHALATION)
     Route: 055
  12. SEREVENT [Concomitant]
     Dosage: ROUTE: RESPIRATORY (INHALATION)
     Route: 055
  13. MEDICON [Concomitant]
     Route: 048
  14. CODEINE PHOSPHATE [Concomitant]
     Dosage: FORM: ORAL FORMULATION (NOT OTHERWISE SPECIFIED).
     Route: 048

REACTIONS (1)
  - ANAPHYLACTIC SHOCK [None]
